FAERS Safety Report 4373096-3 (Version None)
Quarter: 2004Q2

REPORT INFORMATION
  Report Type: 
  Country: None (occurrence: None)
  Receive Date: 20040526
  Receipt Date: 20040513
  Transmission Date: 20050107
  Serious: Yes (Hospitalization, Other)
  Sender: FDA-Public Use
  Company Number: 2004032371

PATIENT
  Age: 42 Year
  Sex: Female

DRUGS (10)
  1. ZITHROMAX [Suspect]
     Indication: ACUTE TONSILLITIS
     Dosage: ORAL
     Route: 048
     Dates: start: 20040312, end: 20040314
  2. ISOSORBIDE MONONITRATE [Suspect]
     Indication: ILL-DEFINED DISORDER
     Dosage: ORAL
     Route: 048
     Dates: start: 20040301
  3. DILTIAZEM HYDROCHLORIDE [Suspect]
     Indication: ILL-DEFINED DISORDER
     Dates: start: 20040301
  4. CANDESARTAN CILEXETIL (CANDESARTAN CILEXETIL) [Concomitant]
     Indication: ILL-DEFINED DISORDER
     Dates: start: 20040301
  5. INDAPAMIDE [Suspect]
     Indication: ILL-DEFINED DISORDER
     Dosage: ORAL
     Route: 048
     Dates: start: 20040301
  6. NITROGLYCERIN [Suspect]
     Indication: ILL-DEFINED DISORDER
     Dosage: SUBLINGUAL
     Route: 060
     Dates: start: 20040301
  7. LIXOPROFEN SODIUM(LOXOPROFEN SODIUM) [Concomitant]
  8. KETEK [Concomitant]
  9. FLOMOXEF SODIUM (FLOMOXEF SODIUM) [Concomitant]
  10. CEFEPIME HYDROCHLORIDE (CEFEPIME HYDROCHLORIDE) [Concomitant]

REACTIONS (5)
  - ACUTE TONSILLITIS [None]
  - ANGINA PECTORIS [None]
  - CORNEAL DISORDER [None]
  - LACRIMATION INCREASED [None]
  - STEVENS-JOHNSON SYNDROME [None]
